FAERS Safety Report 19780665 (Version 2)
Quarter: 2021Q4

REPORT INFORMATION
  Report Type: Spontaneous
  Country: FR (occurrence: FR)
  Receive Date: 20210902
  Receipt Date: 20211117
  Transmission Date: 20220303
  Serious: Yes (Hospitalization, Other)
  Sender: FDA-Public Use
  Company Number: FR-PIRAMAL PHARMA LIMITED-2021-PEL-000172

PATIENT
  Age: 59 Year
  Sex: Male
  Weight: 92 kg

DRUGS (17)
  1. ROCURONIUM [Suspect]
     Active Substance: ROCURONIUM BROMIDE
     Dosage: 0.6 MILLIGRAM/KILOGRAM
     Route: 065
  2. SUFENTANIL [Concomitant]
     Active Substance: SUFENTANIL
     Indication: Anaesthesia
     Dosage: 0.2 MICROGRAM/KILOGRAM
     Route: 065
  3. SEVOFLURANE [Concomitant]
     Active Substance: SEVOFLURANE
     Indication: Maintenance of anaesthesia
     Dosage: 1.5 PERCENT
     Route: 065
  4. SEVOFLURANE [Concomitant]
     Active Substance: SEVOFLURANE
     Dosage: 2.5 PERCENT
     Route: 065
  5. PROPOFOL [Concomitant]
     Active Substance: PROPOFOL
     Indication: General anaesthesia
     Dosage: 3 MILLIGRAM/KILOGRAM
     Route: 065
  6. PROPOFOL [Concomitant]
     Active Substance: PROPOFOL
     Dosage: 0.5 MILLIGRAM/KILOGRAM (2 BOLUS)
     Route: 065
  7. KETOPROFEN [Concomitant]
     Active Substance: KETOPROFEN
     Indication: Antiinflammatory therapy
     Dosage: UNK
     Route: 065
  8. KETOPROFEN [Concomitant]
     Active Substance: KETOPROFEN
     Indication: Analgesic therapy
  9. KETAMINE [Concomitant]
     Active Substance: KETAMINE
     Indication: Hyperaesthesia
     Dosage: 0.2 MILLIGRAM/KILOGRAM
     Route: 065
  10. NEFOPAM [Concomitant]
     Active Substance: NEFOPAM
     Indication: Analgesic therapy
     Dosage: UNK
     Route: 065
  11. DROPERIDOL [Concomitant]
     Active Substance: DROPERIDOL
     Indication: Prophylaxis of nausea and vomiting
     Dosage: 625 MICROGRAM
     Route: 065
  12. DEXTROSE [Concomitant]
     Active Substance: DEXTROSE
     Indication: Lactic acidosis
     Dosage: 10 PERCENT (500 ML)
     Route: 065
  13. DEXTROSE [Concomitant]
     Active Substance: DEXTROSE
     Indication: Hypoglycaemia
  14. MORPHINE [Concomitant]
     Active Substance: MORPHINE
     Indication: Antiinflammatory therapy
     Dosage: UNK
     Route: 048
  15. MORPHINE [Concomitant]
     Active Substance: MORPHINE
     Indication: Analgesic therapy
  16. ACETAMINOPHEN [Concomitant]
     Active Substance: ACETAMINOPHEN
     Indication: Analgesic therapy
     Dosage: UNK
     Route: 065
  17. SALINE                             /00075401/ [Concomitant]
     Indication: Drug therapy
     Dosage: 1000 MILLILITER

REACTIONS (3)
  - Hypotonia [Recovered/Resolved]
  - Neuromuscular blockade [Recovered/Resolved]
  - Hyperlactacidaemia [Recovered/Resolved]
